FAERS Safety Report 5764390-X (Version None)
Quarter: 2008Q2

REPORT INFORMATION
  Report Type: 
  Country: None (occurrence: None)
  Receive Date: 20080604
  Receipt Date: 20080522
  Transmission Date: 20081010
  Serious: Yes (Hospitalization)
  Sender: FDA-Public Use
  Company Number: 8032097

PATIENT
  Sex: Female
  Weight: 72.72 kg

DRUGS (1)
  1. KEPPRA [Suspect]
     Indication: MIGRAINE
     Dosage: 250 MG 2/D
     Dates: start: 20070801

REACTIONS (1)
  - MIGRAINE [None]
